FAERS Safety Report 16486095 (Version 1)
Quarter: 2019Q2

REPORT INFORMATION
  Report Type: Spontaneous
  Country: US (occurrence: US)
  Receive Date: 20190517
  Receipt Date: 20190517
  Transmission Date: 20190711
  Serious: Yes (Other)
  Sender: FDA-Public Use
  Company Number: None

PATIENT
  Age: 69 Year
  Sex: Female

DRUGS (1)
  1. BOTOX [Suspect]
     Active Substance: ONABOTULINUMTOXINA
     Dosage: ?          OTHER FREQUENCY:OTHER;?
     Route: 030
     Dates: start: 20180325, end: 20180325

REACTIONS (5)
  - Swelling face [None]
  - Hypersensitivity [None]
  - Erythema [None]
  - Dyspnoea [None]
  - Pharyngeal swelling [None]

NARRATIVE: CASE EVENT DATE: 20190325
